FAERS Safety Report 21167777 (Version 2)
Quarter: 2022Q4

REPORT INFORMATION
  Report Type: Spontaneous
  Country: US (occurrence: US)
  Receive Date: 20220803
  Receipt Date: 20221128
  Transmission Date: 20230113
  Serious: Yes (Other)
  Sender: FDA-Public Use
  Company Number: US-PFIZER INC-PV202200035324

PATIENT
  Age: 57 Year
  Sex: Male

DRUGS (2)
  1. INLYTA [Interacting]
     Active Substance: AXITINIB
     Dosage: 5 MG, 2X/DAY
     Dates: start: 20220725
  2. CARBAMAZEPINE [Interacting]
     Active Substance: CARBAMAZEPINE
     Dosage: 400 MG, DAILY
     Dates: end: 2022

REACTIONS (7)
  - Seizure [Unknown]
  - Epistaxis [Unknown]
  - Haemoptysis [Unknown]
  - Drug interaction [Unknown]
  - Contraindicated product administered [Unknown]
  - Fatigue [Unknown]
  - Nausea [Unknown]

NARRATIVE: CASE EVENT DATE: 20220101
